FAERS Safety Report 14102382 (Version 1)
Quarter: 2017Q4

REPORT INFORMATION
  Report Type: Spontaneous
  Country: US (occurrence: None)
  Receive Date: 20171018
  Receipt Date: 20171018
  Transmission Date: 20180321
  Serious: Yes (Hospitalization)
  Sender: FDA-Public Use
  Company Number: None

PATIENT
  Age: 74 Year
  Sex: Male
  Weight: 93 kg

DRUGS (1)
  1. PAZOPANIB [Suspect]
     Active Substance: PAZOPANIB
     Dates: end: 20170611

REACTIONS (7)
  - Constipation [None]
  - Neoplasm recurrence [None]
  - Spinal cord compression [None]
  - Muscular weakness [None]
  - Metastases to spine [None]
  - Urinary incontinence [None]
  - Back pain [None]

NARRATIVE: CASE EVENT DATE: 20170612
